FAERS Safety Report 25352058 (Version 1)
Quarter: 2025Q2

REPORT INFORMATION
  Report Type: Report from Study
  Country: US (occurrence: US)
  Receive Date: 20250523
  Receipt Date: 20250523
  Transmission Date: 20250717
  Serious: Yes (Other)
  Sender: ALEXION PHARMACEUTICALS
  Company Number: US-AstraZeneca-CH-00849945A

PATIENT
  Age: 53 Year

DRUGS (2)
  1. STRENSIQ [Suspect]
     Active Substance: ASFOTASE ALFA
     Indication: Hypophosphatasia
     Dosage: 130 MILLIGRAM, TIW
     Route: 065
  2. STRENSIQ [Suspect]
     Active Substance: ASFOTASE ALFA
     Indication: Phosphorus metabolism disorder

REACTIONS (9)
  - Neuropathy peripheral [Unknown]
  - Nephrolithiasis [Unknown]
  - Hemiparesis [Unknown]
  - Muscle tightness [Unknown]
  - Pain in extremity [Unknown]
  - Bone pain [Unknown]
  - Tremor [Unknown]
  - Pain [Unknown]
  - Musculoskeletal stiffness [Unknown]
